FAERS Safety Report 7036418-0 (Version None)
Quarter: 2010Q4

REPORT INFORMATION
  Report Type: 
  Country: None (occurrence: None)
  Receive Date: 20101010
  Receipt Date: 20101004
  Transmission Date: 20110411
  Serious: Yes (Death)
  Sender: FDA-Public Use
  Company Number: PHHY2010MX28732

PATIENT
  Sex: Male

DRUGS (1)
  1. ZOMETA [Suspect]
     Indication: PROSTATE CANCER
     Dosage: 4 MG, 1 APPLICATION MONTHLY
     Route: 042
     Dates: start: 20070401, end: 20070701

REACTIONS (4)
  - METASTASES TO BONE [None]
  - METASTASES TO LUNG [None]
  - MULTI-ORGAN FAILURE [None]
  - PROSTATE CANCER [None]
